FAERS Safety Report 9473149 (Version 1)
Quarter: 2013Q3

REPORT INFORMATION
  Report Type: Spontaneous
  Country: US (occurrence: US)
  Receive Date: 20130823
  Receipt Date: 20130823
  Transmission Date: 20140515
  Serious: No
  Sender: FDA-Public Use
  Company Number: US-BRISTOL-MYERS SQUIBB COMPANY-18595447

PATIENT
  Sex: 0

DRUGS (1)
  1. SPRYCEL [Suspect]
     Dosage: DOSE REDUCED-50MG/D
     Dates: start: 2010

REACTIONS (2)
  - Rash [Unknown]
  - Pleural effusion [Unknown]
